FAERS Safety Report 17093186 (Version 1)
Quarter: 2019Q4

REPORT INFORMATION
  Report Type: Spontaneous
  Country: NL (occurrence: NL)
  Receive Date: 20191129
  Receipt Date: 20191129
  Transmission Date: 20200122
  Serious: Yes (Hospitalization)
  Sender: FDA-Public Use
  Company Number: NL-TEVA-2019-NL-1143024

PATIENT
  Age: 53 Year
  Sex: Male

DRUGS (4)
  1. ACENOCOUMAROL [Concomitant]
     Active Substance: ACENOCOUMAROL
  2. QUINAPRIL. [Concomitant]
     Active Substance: QUINAPRIL
  3. ATORVASTATINE [Concomitant]
     Active Substance: ATORVASTATIN
  4. METOPROLOL. [Suspect]
     Active Substance: METOPROLOL
     Dosage: 50MG 2X PER DAY
     Dates: start: 2003, end: 2005

REACTIONS (1)
  - Delirium [Recovered/Resolved]

NARRATIVE: CASE EVENT DATE: 2005
